FAERS Safety Report 6824985-9 (Version None)
Quarter: 2010Q3

REPORT INFORMATION
  Report Type: 
  Country: None (occurrence: None)
  Receive Date: 20100708
  Receipt Date: 20061128
  Transmission Date: 20110219
  Serious: No
  Sender: FDA-Public Use
  Company Number: US-PFIZER INC-2006148397

PATIENT
  Sex: Female
  Weight: 52.16 kg

DRUGS (3)
  1. CHANTIX [Suspect]
     Indication: SMOKING CESSATION THERAPY
     Dates: start: 20061001
  2. KEFLEX [Suspect]
     Indication: ABSCESS
     Dates: start: 20060101
  3. LITHIUM CARBONATE [Concomitant]

REACTIONS (5)
  - ABSCESS [None]
  - BOWEL MOVEMENT IRREGULARITY [None]
  - DIARRHOEA [None]
  - NAUSEA [None]
  - WEIGHT DECREASED [None]
